FAERS Safety Report 18001569 (Version 4)
Quarter: 2022Q1

REPORT INFORMATION
  Report Type: Spontaneous
  Country: US (occurrence: US)
  Receive Date: 20200709
  Receipt Date: 20220107
  Transmission Date: 20220424
  Serious: Yes (Other)
  Sender: FDA-Public Use
  Company Number: US-PFIZER INC-2020263398

PATIENT
  Age: 75 Year
  Sex: Female

DRUGS (4)
  1. XELJANZ XR [Suspect]
     Active Substance: TOFACITINIB CITRATE
     Dosage: 11 MG
     Dates: start: 20200501
  2. XELJANZ XR [Suspect]
     Active Substance: TOFACITINIB CITRATE
     Dosage: UNK
     Dates: start: 20200519
  3. XELJANZ XR [Suspect]
     Active Substance: TOFACITINIB CITRATE
     Dosage: 11 MG
     Dates: start: 20200519
  4. XELJANZ XR [Suspect]
     Active Substance: TOFACITINIB CITRATE
     Dosage: 11 MG, UNK
     Dates: start: 20210928

REACTIONS (10)
  - Neuralgia [Unknown]
  - Paraesthesia [Unknown]
  - Nerve compression [Unknown]
  - Fatigue [Unknown]
  - Arthralgia [Unknown]
  - Balance disorder [Unknown]
  - Fall [Unknown]
  - Contusion [Unknown]
  - Arthralgia [Unknown]
  - Muscle disorder [Unknown]

NARRATIVE: CASE EVENT DATE: 20200501
